FAERS Safety Report 17978377 (Version 1)
Quarter: 2020Q3

REPORT INFORMATION
  Report Type: Spontaneous
  Country: US (occurrence: US)
  Receive Date: 20200703
  Receipt Date: 20200703
  Transmission Date: 20201103
  Serious: No
  Sender: FDA-Public Use
  Company Number: US-GW PHARMA-202006USGW02341

PATIENT

DRUGS (3)
  1. EPIDIOLEX [Suspect]
     Active Substance: CANNABIDIOL
     Indication: PARTIAL SEIZURES
     Dosage: 225 MILLIGRAM, BID
     Route: 048
     Dates: start: 202006
  2. EPIDIOLEX [Suspect]
     Active Substance: CANNABIDIOL
     Indication: EPILEPSY
  3. EPIDIOLEX [Suspect]
     Active Substance: CANNABIDIOL
     Indication: FOCAL DYSCOGNITIVE SEIZURES

REACTIONS (3)
  - Product use in unapproved indication [Not Recovered/Not Resolved]
  - Fatigue [Unknown]
  - Depressed mood [Unknown]

NARRATIVE: CASE EVENT DATE: 202006
